FAERS Safety Report 10241017 (Version 2)
Quarter: 2014Q2

REPORT INFORMATION
  Report Type: Spontaneous
  Country: US (occurrence: US)
  Receive Date: 20140617
  Receipt Date: 20140617
  Transmission Date: 20141212
  Serious: Yes (Hospitalization, Other)
  Sender: FDA-Public Use
  Company Number: US-009507513-2009SP030810

PATIENT
  Sex: Female
  Weight: 55.79 kg

DRUGS (15)
  1. NUVARING [Suspect]
     Indication: CONTRACEPTION
     Dosage: UNK
     Route: 067
     Dates: start: 200409
  2. NUVARING [Suspect]
     Dosage: UNK
     Route: 067
     Dates: start: 20060322, end: 20070322
  3. NUVARING [Suspect]
     Dosage: UNK
     Route: 067
     Dates: start: 20070726, end: 20080324
  4. WELLBUTRIN [Concomitant]
     Indication: DEPRESSION
     Dosage: 150 MG, QD
  5. LEXAPRO [Concomitant]
     Indication: PRODUCT USED FOR UNKNOWN INDICATION
  6. CANASA [Concomitant]
     Indication: PRODUCT USED FOR UNKNOWN INDICATION
     Dosage: 1000 MG, UNK
  7. CELEXA [Concomitant]
     Indication: PRODUCT USED FOR UNKNOWN INDICATION
     Dosage: 10 MG, UNK
  8. NYSTATIN [Concomitant]
     Indication: PRODUCT USED FOR UNKNOWN INDICATION
     Dosage: 100,000 U/GM
  9. MESALAMINE [Concomitant]
     Indication: PRODUCT USED FOR UNKNOWN INDICATION
     Dosage: 4GM/60 ML
  10. AKNE-MYCIN [Concomitant]
     Indication: PRODUCT USED FOR UNKNOWN INDICATION
     Dosage: 2%
  11. DOXYCYCLINE [Concomitant]
     Indication: PRODUCT USED FOR UNKNOWN INDICATION
     Dosage: 100 MG, UNK
  12. ACETAMINOPHEN (+) HYDROCODONE BITARTRATE [Concomitant]
     Indication: PRODUCT USED FOR UNKNOWN INDICATION
     Dosage: 7.5/750
  13. METICORTEN [Concomitant]
     Indication: PRODUCT USED FOR UNKNOWN INDICATION
     Dosage: 10 MG, UNK
     Route: 048
  14. DIFFERIN [Concomitant]
     Indication: PRODUCT USED FOR UNKNOWN INDICATION
     Dosage: 0.1%
  15. APRAZ [Concomitant]
     Indication: PRODUCT USED FOR UNKNOWN INDICATION
     Dosage: 0.5 MG, UNK

REACTIONS (23)
  - Biliary dyskinesia [Unknown]
  - Cerebrovascular disorder [Unknown]
  - Headache [Unknown]
  - Intracranial venous sinus thrombosis [Recovering/Resolving]
  - Jugular vein thrombosis [Recovering/Resolving]
  - Deep vein thrombosis [Unknown]
  - Cerebral haemorrhage [Unknown]
  - Appendicitis noninfective [Unknown]
  - Aortic arteriosclerosis [Unknown]
  - Sinusitis [Unknown]
  - Breast cyst [Unknown]
  - Vaginal infection [Not Recovered/Not Resolved]
  - Vaginal discharge [Not Recovered/Not Resolved]
  - Weight increased [Unknown]
  - Abdominal pain upper [Unknown]
  - Dyspareunia [Unknown]
  - Headache [Unknown]
  - Cholecystectomy [Unknown]
  - Appendicectomy [Unknown]
  - Ear pain [Unknown]
  - Chills [Unknown]
  - Pain [Unknown]
  - Pyrexia [Unknown]
